FAERS Safety Report 4845154-8 (Version None)
Quarter: 2005Q4

REPORT INFORMATION
  Report Type: 
  Country: None (occurrence: None)
  Receive Date: 20051205
  Receipt Date: 20051130
  Transmission Date: 20060501
  Serious: Yes (Life-Threatening, Hospitalization)
  Sender: FDA-Public Use
  Company Number: AU-ROCHE-426549

PATIENT
  Age: 28 Year
  Sex: Female
  Weight: 80 kg

DRUGS (4)
  1. NAPROSYN [Suspect]
     Indication: DRUG USE FOR UNKNOWN INDICATION
     Route: 065
     Dates: end: 20031018
  2. LOSEC [Concomitant]
  3. PLAQUENIL [Concomitant]
  4. VALIUM [Concomitant]

REACTIONS (2)
  - PROCTALGIA [None]
  - RECTAL HAEMORRHAGE [None]
